FAERS Safety Report 6395422-6 (Version None)
Quarter: 2009Q4

REPORT INFORMATION
  Report Type: 
  Country: None (occurrence: None)
  Receive Date: 20091009
  Receipt Date: 20090928
  Transmission Date: 20100525
  Serious: Yes (Hospitalization, Other)
  Sender: FDA-Public Use
  Company Number: FR-PFIZER INC-2009190988

PATIENT
  Age: 75 Year

DRUGS (11)
  1. XALATAN [Suspect]
     Indication: OCULAR HYPERTENSION
     Dosage: UNK
     Route: 047
     Dates: start: 20030522, end: 20090301
  2. STILNOX [Concomitant]
     Dosage: UNK
     Route: 048
  3. ACTONEL [Concomitant]
     Dosage: 1 DF, WEEKLY
     Route: 048
  4. SYMBICORT [Concomitant]
     Dosage: UNK
     Route: 055
  5. CORTANCYL [Concomitant]
     Dosage: UNK
     Route: 048
  6. GLUCOPHAGE [Concomitant]
     Dosage: 100 MG, 3X/DAY
     Route: 048
  7. IDEOS [Concomitant]
     Dosage: UNK
     Route: 048
  8. FUROSEMIDE [Concomitant]
     Dosage: UNK
     Route: 048
  9. ACUILIX [Concomitant]
     Dosage: UNK
     Route: 048
  10. DEROXAT [Concomitant]
     Dosage: UNK
     Route: 048
  11. OMEPRAZOLE [Concomitant]
     Dosage: UNK
     Route: 048

REACTIONS (1)
  - CHOROID MELANOMA [None]
